FAERS Safety Report 7601578-7 (Version None)
Quarter: 2011Q2

REPORT INFORMATION
  Report Type: 
  Country: None (occurrence: None)
  Receive Date: 20110629
  Receipt Date: 20100621
  Transmission Date: 20111010
  Serious: Yes (Other)
  Sender: FDA-Public Use
  Company Number: 710638

PATIENT
  Age: 13 Year
  Sex: Female

DRUGS (1)
  1. CLONAZEPAM [Suspect]
     Indication: DYSKINESIA
     Dosage: 0.5 MG, 2 PER 1 DAY

REACTIONS (1)
  - PSYCHOTIC DISORDER [None]
